FAERS Safety Report 11822334 (Version 6)
Quarter: 2018Q4

REPORT INFORMATION
  Report Type: Spontaneous
  Country: US (occurrence: US)
  Receive Date: 20151210
  Receipt Date: 20181120
  Transmission Date: 20190204
  Serious: No
  Sender: FDA-Public Use
  Company Number: US-JNJFOC-20150617210

PATIENT
  Age: 70 Year
  Sex: Female

DRUGS (21)
  1. SERTRALINE [Concomitant]
     Active Substance: SERTRALINE HYDROCHLORIDE
  2. MELOXICAM. [Concomitant]
     Active Substance: MELOXICAM
  3. VITAMIN B12 [Concomitant]
     Active Substance: CYANOCOBALAMIN
  4. MELATONIN [Concomitant]
     Active Substance: MELATONIN
  5. NITROFURANTOIN. [Concomitant]
     Active Substance: NITROFURANTOIN
  6. TYLENOL [Concomitant]
     Active Substance: ACETAMINOPHEN
  7. UTISTAT [Concomitant]
  8. CALCIUM [Concomitant]
     Active Substance: CALCIUM
  9. KEFLEX [Concomitant]
     Active Substance: CEPHALEXIN
  10. IMBRUVICA [Suspect]
     Active Substance: IBRUTINIB
     Indication: CHRONIC LYMPHOCYTIC LEUKAEMIA
     Route: 048
     Dates: start: 20150515, end: 20150608
  11. IMBRUVICA [Suspect]
     Active Substance: IBRUTINIB
     Indication: CHRONIC LYMPHOCYTIC LEUKAEMIA
     Route: 048
     Dates: start: 20151107
  12. IMBRUVICA [Suspect]
     Active Substance: IBRUTINIB
     Indication: CHRONIC LYMPHOCYTIC LEUKAEMIA
     Route: 048
     Dates: start: 20160316
  13. THYROXINE [Concomitant]
     Active Substance: LEVOTHYROXINE
  14. CRESTOR [Concomitant]
     Active Substance: ROSUVASTATIN CALCIUM
  15. FLUTICASONE. [Concomitant]
     Active Substance: FLUTICASONE
  16. POTASSIUM [Concomitant]
     Active Substance: POTASSIUM
  17. IMBRUVICA [Suspect]
     Active Substance: IBRUTINIB
     Indication: CHRONIC LYMPHOCYTIC LEUKAEMIA
     Route: 048
     Dates: start: 20150615
  18. ZOLPIDEM [Concomitant]
     Active Substance: ZOLPIDEM\ZOLPIDEM TARTRATE
  19. ALENDRONATE [Concomitant]
     Active Substance: ALENDRONATE SODIUM
  20. BENADRYL [Concomitant]
     Active Substance: DIPHENHYDRAMINE HYDROCHLORIDE
  21. OMEPRAZOLE. [Concomitant]
     Active Substance: OMEPRAZOLE

REACTIONS (12)
  - Arthritis [Unknown]
  - Unevaluable event [Unknown]
  - Contusion [Unknown]
  - Dyspepsia [Unknown]
  - Haematuria [Unknown]
  - Stomatitis [Unknown]
  - Arthropod bite [Unknown]
  - Diarrhoea [Unknown]
  - Arthralgia [Not Recovered/Not Resolved]
  - Cystitis [Not Recovered/Not Resolved]
  - Urinary tract infection [Unknown]
  - Oropharyngeal pain [Unknown]

NARRATIVE: CASE EVENT DATE: 2015
